FAERS Safety Report 24184669 (Version 2)
Quarter: 2024Q3

REPORT INFORMATION
  Report Type: Spontaneous
  Country: US (occurrence: US)
  Receive Date: 20240807
  Receipt Date: 20240904
  Transmission Date: 20241017
  Serious: Yes (Death, Hospitalization)
  Sender: JOHNSON AND JOHNSON
  Company Number: US-JNJFOC-20240769455

PATIENT
  Age: 72 Year
  Sex: Male
  Weight: 85.5 kg

DRUGS (1)
  1. CARVYKTI [Suspect]
     Active Substance: CILTACABTAGENE AUTOLEUCEL
     Indication: Plasma cell myeloma
     Dosage: 0.5X10^6 T-CELLS/KG
     Route: 042
     Dates: start: 20240408

REACTIONS (4)
  - Pseudomonal sepsis [Fatal]
  - Pneumonia [Unknown]
  - Cough [Unknown]
  - Sinus congestion [Unknown]

NARRATIVE: CASE EVENT DATE: 20240626
